FAERS Safety Report 5710766-6 (Version None)
Quarter: 2008Q2

REPORT INFORMATION
  Report Type: 
  Country: None (occurrence: None)
  Receive Date: 20080418
  Receipt Date: 20080418
  Transmission Date: 20081010
  Serious: Yes (Other)
  Sender: FDA-Public Use
  Company Number: None

PATIENT
  Age: 30 Year
  Sex: Female
  Weight: 61.2356 kg

DRUGS (3)
  1. SERTRALINE [Suspect]
     Indication: ANXIETY DISORDER
     Dosage: 1/2 TABLET ONCE A DAY PO
     Route: 048
     Dates: start: 20071001, end: 20071101
  2. ZOLOFT [Suspect]
  3. BUPROPION HCL [Suspect]

REACTIONS (3)
  - ANXIETY [None]
  - PANIC ATTACK [None]
  - THERAPEUTIC RESPONSE UNEXPECTED WITH DRUG SUBSTITUTION [None]
